FAERS Safety Report 6386439-6 (Version None)
Quarter: 2009Q4

REPORT INFORMATION
  Report Type: 
  Country: None (occurrence: None)
  Receive Date: 20091002
  Receipt Date: 20090511
  Transmission Date: 20100525
  Serious: Yes (Other)
  Sender: FDA-Public Use
  Company Number: US-ASTRAZENECA-2009UW12123

PATIENT
  Age: 68 Year
  Sex: Female

DRUGS (9)
  1. ARIMIDEX [Suspect]
     Indication: BREAST CANCER FEMALE
     Route: 048
  2. INSULIN [Concomitant]
  3. TRICOR [Concomitant]
  4. COZAAR [Concomitant]
  5. SPIRONOLACTONE [Concomitant]
  6. ATENOLOL [Concomitant]
  7. PREVACID [Concomitant]
  8. DARVOCET [Concomitant]
  9. ALEVE [Concomitant]

REACTIONS (1)
  - LYMPHOEDEMA [None]
